FAERS Safety Report 7228280-8 (Version None)
Quarter: 2011Q1

REPORT INFORMATION
  Report Type: 
  Country: None (occurrence: None)
  Receive Date: 20110114
  Receipt Date: 20110110
  Transmission Date: 20110831
  Serious: Yes (Hospitalization)
  Sender: FDA-Public Use
  Company Number: US-KINGPHARMUSA00001-K201100055

PATIENT
  Sex: Female
  Weight: 65.76 kg

DRUGS (1)
  1. ALTACE [Suspect]
     Dosage: UNK
     Route: 048
     Dates: start: 20050101

REACTIONS (4)
  - CORONARY ARTERY OCCLUSION [None]
  - DISORIENTATION [None]
  - VENTRICULAR TACHYCARDIA [None]
  - ATRIAL FIBRILLATION [None]
